FAERS Safety Report 6858246-9 (Version None)
Quarter: 2010Q3

REPORT INFORMATION
  Report Type: 
  Country: None (occurrence: None)
  Receive Date: 20100719
  Receipt Date: 20080203
  Transmission Date: 20110219
  Serious: No
  Sender: FDA-Public Use
  Company Number: US-PFIZER INC-2008012299

PATIENT
  Sex: Male
  Weight: 63.5 kg

DRUGS (7)
  1. CHANTIX [Suspect]
     Indication: SMOKING CESSATION THERAPY
     Dates: start: 20080101
  2. MORPHINE [Concomitant]
  3. WELLBUTRIN [Concomitant]
  4. VYTORIN [Concomitant]
  5. HYPERICUM PERFORATUM [Concomitant]
  6. ACETYLSALICYLIC ACID [Concomitant]
  7. VITAMIN E [Concomitant]

REACTIONS (2)
  - CONSTIPATION [None]
  - NAUSEA [None]
